FAERS Safety Report 17551091 (Version 1)
Quarter: 2020Q1

REPORT INFORMATION
  Report Type: Not Available
  Country: GB (occurrence: GB)
  Receive Date: 20200317
  Receipt Date: 20200317
  Transmission Date: 20200409
  Serious: Yes (Other)
  Sender: FDA-Public Use
  Company Number: GB-SYNTHON BV-IN51PV20_52883

PATIENT
  Age: 47 Year
  Sex: Male
  Weight: 85 kg

DRUGS (1)
  1. TAMSULOSIN [Suspect]
     Active Substance: TAMSULOSIN
     Indication: MICTURITION URGENCY
     Dosage: 400 MICROGRAM, QD
     Dates: start: 20190319, end: 20190321

REACTIONS (5)
  - Hot flush [Recovered/Resolved with Sequelae]
  - Dyspepsia [Unknown]
  - Chest discomfort [Unknown]
  - Gastrooesophageal reflux disease [Recovering/Resolving]
  - Dry throat [Unknown]

NARRATIVE: CASE EVENT DATE: 20190319
